FAERS Safety Report 8338457-6 (Version None)
Quarter: 2012Q2

REPORT INFORMATION
  Report Type: 
  Country: None (occurrence: None)
  Receive Date: 20120504
  Receipt Date: 20120427
  Transmission Date: 20120825
  Serious: Yes (Hospitalization)
  Sender: FDA-Public Use
  Company Number: US-INCYTE CORPORATION-2012IN000327

PATIENT
  Sex: Female
  Weight: 58.957 kg

DRUGS (8)
  1. JAKAFI [Suspect]
     Dosage: 20 MG, BID
     Route: 048
     Dates: start: 20120218
  2. OXYCODONE HCL [Concomitant]
     Indication: PAIN
     Dosage: 5 MG, Q4H PRN
     Route: 048
  3. FERROUS SULFATE TAB [Concomitant]
     Dosage: 75 MG, BID
     Route: 048
  4. JAKAFI [Suspect]
     Indication: MYELOFIBROSIS
     Dosage: 15 MG, BID
     Route: 048
     Dates: start: 20120118, end: 20120217
  5. SENNA-S [Concomitant]
     Dosage: 1 TAB, BID
     Route: 048
  6. COLACE [Concomitant]
     Indication: CONSTIPATION
     Dosage: 100 MG, BID PRN
     Route: 048
  7. ALLOPURINOL [Concomitant]
     Dosage: 300 MG, QD
     Route: 048
  8. METHADONE HCL [Concomitant]
     Dosage: 5 MG, Q4H PRN
     Route: 048

REACTIONS (1)
  - OEDEMA [None]
